FAERS Safety Report 13467268 (Version 1)
Quarter: 2017Q2

REPORT INFORMATION
  Report Type: Spontaneous
  Country: US (occurrence: US)
  Receive Date: 20170420
  Receipt Date: 20170420
  Transmission Date: 20170830
  Serious: Yes (Other)
  Sender: FDA-Public Use
  Company Number: None

PATIENT
  Age: 61 Year
  Sex: Male
  Weight: 72.1 kg

DRUGS (2)
  1. LEUCOVORIN. [Suspect]
     Active Substance: LEUCOVORIN
     Dosage: 720MG (400 MG/M^2) ONCE INTRAVENOUS
     Route: 042
  2. OXALIPLATIN. [Suspect]
     Active Substance: OXALIPLATIN
     Indication: COLON CANCER
     Dosage: 152MG (85 MG/M^2) ONCE INTRAVENOUS
     Route: 042
     Dates: start: 20170314

REACTIONS (5)
  - Back pain [None]
  - Blood pressure increased [None]
  - Cyanosis [None]
  - Chills [None]
  - Hypersensitivity [None]

NARRATIVE: CASE EVENT DATE: 20170314
